FAERS Safety Report 18822042 (Version 2)
Quarter: 2021Q1

REPORT INFORMATION
  Report Type: Spontaneous
  Country: CA (occurrence: CA)
  Receive Date: 20210202
  Receipt Date: 20210331
  Transmission Date: 20210419
  Serious: Yes (Death, Other)
  Sender: FDA-Public Use
  Company Number: CA-PURDUE-USA-2021-0202592

PATIENT
  Age: 50 Year
  Sex: Female

DRUGS (32)
  1. FENTANYL. [Suspect]
     Active Substance: FENTANYL
     Dosage: 200 MCG, Q1H
     Route: 065
  2. DEXAMETHASONE. [Concomitant]
     Active Substance: DEXAMETHASONE
     Dosage: UNK
  3. NON?PMN HYDROMORPHONE HCL [Suspect]
     Active Substance: HYDROMORPHONE HYDROCHLORIDE
     Indication: PAIN
     Dosage: 0.3 MG, Q1H
     Route: 042
  4. NON?PMN HYDROMORPHONE HCL [Suspect]
     Active Substance: HYDROMORPHONE HYDROCHLORIDE
     Dosage: 0.6 MG, TWICE
     Route: 058
  5. NON?PMN HYDROMORPHONE HCL [Suspect]
     Active Substance: HYDROMORPHONE HYDROCHLORIDE
     Dosage: 1 MG, Q1H AS NEEDED
     Route: 058
  6. NON?PMN HYDROMORPHONE HCL [Suspect]
     Active Substance: HYDROMORPHONE HYDROCHLORIDE
     Dosage: FROM 8 TO 12 MG PER 24H
     Route: 065
  7. NON?PMN HYDROMORPHONE HCL [Suspect]
     Active Substance: HYDROMORPHONE HYDROCHLORIDE
     Dosage: FROM 8 TO 12 MG PER 24H
     Route: 065
  8. NON?PMN HYDROMORPHONE HCL [Suspect]
     Active Substance: HYDROMORPHONE HYDROCHLORIDE
     Dosage: 0.5 MG, Q1H
     Route: 058
  9. NON?PMN HYDROMORPHONE HCL [Suspect]
     Active Substance: HYDROMORPHONE HYDROCHLORIDE
     Indication: DYSPNOEA
     Dosage: 0.2 MG, Q1H
     Route: 042
  10. NON?PMN HYDROMORPHONE HCL [Suspect]
     Active Substance: HYDROMORPHONE HYDROCHLORIDE
     Dosage: 0.3 MG, Q1H
     Route: 042
  11. NON?PMN HYDROMORPHONE HCL [Suspect]
     Active Substance: HYDROMORPHONE HYDROCHLORIDE
     Dosage: 1 MG, Q1H
     Route: 042
  12. NON?PMN HYDROMORPHONE HCL [Suspect]
     Active Substance: HYDROMORPHONE HYDROCHLORIDE
     Dosage: 0.2 MG, Q1H
     Route: 058
  13. NON?PMN HYDROMORPHONE HCL [Suspect]
     Active Substance: HYDROMORPHONE HYDROCHLORIDE
     Dosage: 0.3 MG, Q1H
     Route: 058
  14. NON?PMN HYDROMORPHONE HCL [Suspect]
     Active Substance: HYDROMORPHONE HYDROCHLORIDE
     Dosage: 1 MG, Q1H (2MG/ML STRENGTH)
     Route: 058
  15. FENTANYL. [Suspect]
     Active Substance: FENTANYL
     Dosage: 200 MCG, UNK
     Route: 062
  16. FENTANYL. [Suspect]
     Active Substance: FENTANYL
     Route: 062
  17. DEXAMETHASONE. [Concomitant]
     Active Substance: DEXAMETHASONE
     Indication: PRODUCT USED FOR UNKNOWN INDICATION
     Dosage: UNK
     Route: 065
  18. NON?PMN HYDROMORPHONE HCL [Suspect]
     Active Substance: HYDROMORPHONE HYDROCHLORIDE
     Dosage: 0.4 MG, Q1H
     Route: 058
  19. NON?PMN HYDROMORPHONE HCL [Suspect]
     Active Substance: HYDROMORPHONE HYDROCHLORIDE
     Dosage: 0.3 MG, Q1H
     Route: 058
  20. NON?PMN HYDROMORPHONE HCL [Suspect]
     Active Substance: HYDROMORPHONE HYDROCHLORIDE
     Dosage: FROM 8 TO 12 MG PER 24H
     Route: 065
  21. NON?PMN HYDROMORPHONE HCL [Suspect]
     Active Substance: HYDROMORPHONE HYDROCHLORIDE
     Dosage: 0.3 MG, Q1H
     Route: 058
  22. NON?PMN HYDROMORPHONE HCL [Suspect]
     Active Substance: HYDROMORPHONE HYDROCHLORIDE
     Dosage: 0.3 MG, Q1H
     Route: 058
  23. NON?PMN HYDROMORPHONE HCL [Suspect]
     Active Substance: HYDROMORPHONE HYDROCHLORIDE
     Dosage: 0.6 MG, Q1H AS NEEDED (2MG/ML STRENGTH)
     Route: 058
  24. NON?PMN HYDROMORPHONE HCL [Suspect]
     Active Substance: HYDROMORPHONE HYDROCHLORIDE
     Dosage: 0.2 MG, Q1H
     Route: 058
  25. NON?PMN HYDROMORPHONE HCL [Suspect]
     Active Substance: HYDROMORPHONE HYDROCHLORIDE
     Dosage: 0.4 MG, Q1H
     Route: 058
  26. NON?PMN HYDROMORPHONE HCL [Suspect]
     Active Substance: HYDROMORPHONE HYDROCHLORIDE
     Dosage: 0.6 MG, Q1H AS NEEDED (2MG/ML STRENGTH)
     Route: 058
  27. ACETAMINOPHEN. [Concomitant]
     Active Substance: ACETAMINOPHEN
     Dosage: UNK
  28. NON?PMN HYDROMORPHONE HCL [Suspect]
     Active Substance: HYDROMORPHONE HYDROCHLORIDE
     Dosage: 0.4 MG, Q1H
     Route: 042
  29. NON?PMN HYDROMORPHONE HCL [Suspect]
     Active Substance: HYDROMORPHONE HYDROCHLORIDE
     Dosage: 0.5 MG, Q1H
     Route: 042
  30. NON?PMN HYDROMORPHONE HCL [Suspect]
     Active Substance: HYDROMORPHONE HYDROCHLORIDE
     Dosage: 0.5 MG, Q1H
     Route: 058
  31. NON?PMN HYDROMORPHONE HCL [Suspect]
     Active Substance: HYDROMORPHONE HYDROCHLORIDE
     Dosage: 1 MG, Q1H (2MG/ML STRENGTH)
     Route: 058
  32. FENTANYL. [Suspect]
     Active Substance: FENTANYL
     Indication: PRODUCT USED FOR UNKNOWN INDICATION
     Dosage: 100 MCG, Q1H
     Route: 062

REACTIONS (5)
  - Dyspnoea [Unknown]
  - Somnolence [Recovered/Resolved]
  - Death [Fatal]
  - Cancer pain [Unknown]
  - Sedation [Not Recovered/Not Resolved]
